FAERS Safety Report 8907311 (Version 2)
Quarter: 2013Q1

REPORT INFORMATION
  Report Type: Spontaneous
  Country: FR (occurrence: FR)
  Receive Date: 20121114
  Receipt Date: 20130114
  Transmission Date: 20140127
  Serious: Yes (Hospitalization)
  Sender: FDA-Public Use
  Company Number: FR-ASTRAZENECA-2012SE84740

PATIENT
  Age: 66 Year
  Sex: Male

DRUGS (10)
  1. INEXIUM [Suspect]
     Route: 048
     Dates: start: 20120927, end: 20121002
  2. PERFALGAN [Suspect]
     Dates: start: 20120927
  3. MORPHINE [Suspect]
     Route: 042
     Dates: start: 20120927
  4. ASPEGIC [Suspect]
  5. HEPARINE CHOAY [Suspect]
     Dates: start: 20120927
  6. LOXEN [Suspect]
     Dates: start: 20120927, end: 20121002
  7. EUPRESSYL [Suspect]
     Dates: start: 20120927
  8. KEFORAL [Suspect]
     Dates: start: 20120927, end: 20120928
  9. ACUPAN [Suspect]
     Dates: start: 20120927, end: 20120928
  10. EXACYL [Suspect]
     Dates: start: 20120927

REACTIONS (1)
  - Acute promyelocytic leukaemia [Unknown]
